FAERS Safety Report 6107662-1 (Version None)
Quarter: 2009Q1

REPORT INFORMATION
  Report Type: 
  Country: None (occurrence: None)
  Receive Date: 20090309
  Receipt Date: 20090227
  Transmission Date: 20090719
  Serious: Yes (Other)
  Sender: FDA-Public Use
  Company Number: GB-BAYER-200915098GPV

PATIENT
  Age: 33 Year
  Sex: Female
  Weight: 81 kg

DRUGS (11)
  1. ASPIRIN [Suspect]
     Indication: ANTIPHOSPHOLIPID SYNDROME
     Route: 065
  2. ASPIRIN [Suspect]
     Route: 065
  3. ALFENTANIL [Suspect]
     Indication: DRUG USE FOR UNKNOWN INDICATION
     Route: 065
  4. DALTEPARIN SODIUM [Suspect]
     Indication: ANTIPHOSPHOLIPID SYNDROME
     Route: 065
  5. ISOFLURANE [Suspect]
     Indication: DRUG USE FOR UNKNOWN INDICATION
     Route: 065
  6. METOCLOPRAMIDE HYDROCHLORIDE [Suspect]
     Indication: DRUG USE FOR UNKNOWN INDICATION
     Route: 065
  7. PROTAMINE SULFATE [Suspect]
     Indication: DRUG USE FOR UNKNOWN INDICATION
     Route: 065
  8. RANITIDINE [Suspect]
     Indication: DRUG USE FOR UNKNOWN INDICATION
     Route: 065
  9. SODIUM CITRATE [Suspect]
     Indication: DRUG USE FOR UNKNOWN INDICATION
     Route: 048
  10. SUCCINYLCHOLINE CHLORIDE [Suspect]
     Indication: DRUG USE FOR UNKNOWN INDICATION
     Route: 065
  11. THIOPENTAL SODIUM [Suspect]
     Indication: DRUG USE FOR UNKNOWN INDICATION
     Route: 065

REACTIONS (14)
  - ACTIVATED PARTIAL THROMBOPLASTIN TIME PROLONGED [None]
  - APHASIA [None]
  - CAESAREAN SECTION [None]
  - DRUG EXPOSURE DURING PREGNANCY [None]
  - DYSPHASIA [None]
  - FALL [None]
  - FOETAL MALPRESENTATION [None]
  - HEMIPLEGIA [None]
  - HYPOCOAGULABLE STATE [None]
  - HYPOTONIA [None]
  - IDIOPATHIC THROMBOCYTOPENIC PURPURA [None]
  - ISCHAEMIC STROKE [None]
  - PREMATURE LABOUR [None]
  - PREMATURE RUPTURE OF MEMBRANES [None]
